FAERS Safety Report 7716197-1 (Version None)
Quarter: 2011Q3

REPORT INFORMATION
  Report Type: 
  Country: None (occurrence: None)
  Receive Date: 20110812
  Receipt Date: 20110601
  Transmission Date: 20111222
  Serious: Yes (Other)
  Sender: FDA-Public Use
  Company Number: 936093

PATIENT
  Age: 41 Year
  Sex: Male
  Weight: 84.1 kg

DRUGS (5)
  1. TYLENOL (CAPLET) [Concomitant]
  2. DOCETAXEL [Suspect]
     Indication: NON-SMALL CELL LUNG CANCER
     Dosage: 150 MG, Q21D, INTRAVENOUS DRIP
     Route: 041
     Dates: start: 20110525, end: 20110525
  3. ZOFRAN [Concomitant]
  4. COMPAZINE [Concomitant]
  5. (THERAPEUTIC RADIOPHARMACEUTICALS) [Concomitant]

REACTIONS (1)
  - NEURALGIA [None]
